FAERS Safety Report 5507139-8 (Version None)
Quarter: 2007Q4

REPORT INFORMATION
  Report Type: 
  Country: None (occurrence: None)
  Receive Date: 20071102
  Receipt Date: 20071022
  Transmission Date: 20080405
  Serious: Yes (Hospitalization)
  Sender: FDA-Public Use
  Company Number: 238053K07USA

PATIENT
  Age: 41 Year
  Sex: Female
  Weight: 95.2554 kg

DRUGS (1)
  1. REBIF [Suspect]
     Indication: MULTIPLE SCLEROSIS
     Dosage: 3 IN 1 WEEKS
     Dates: start: 20060801

REACTIONS (4)
  - ADNEXA UTERI MASS [None]
  - CARBOHYDRATE ANTIGEN 125 INCREASED [None]
  - ENDOMETRIOSIS [None]
  - UTERINE LEIOMYOMA [None]
